FAERS Safety Report 23788510 (Version 1)
Quarter: 2024Q2

REPORT INFORMATION
  Report Type: Spontaneous
  Country: US (occurrence: US)
  Receive Date: 20240426
  Receipt Date: 20240426
  Transmission Date: 20240716
  Serious: No
  Sender: FDA-Public Use
  Company Number: US-TEVA-VS-3170213

PATIENT
  Sex: Female

DRUGS (31)
  1. PENICILLIN [Suspect]
     Active Substance: PENICILLIN
     Indication: Product used for unknown indication
     Route: 065
  2. ACIDOPHILUS PROBIOTIC BLEND [Concomitant]
     Indication: Product used for unknown indication
  3. Albuterol Sulfate HF [Concomitant]
     Indication: Product used for unknown indication
  4. ALPRAZolam TAB [Concomitant]
     Indication: Product used for unknown indication
  5. BUDESONIDE [Concomitant]
     Active Substance: BUDESONIDE
     Indication: Product used for unknown indication
  6. COMBIVENT RESPIMAT [Concomitant]
     Active Substance: ALBUTEROL SULFATE\IPRATROPIUM BROMIDE
     Indication: Product used for unknown indication
  7. Cyanocobalamin, [Concomitant]
     Indication: Product used for unknown indication
  8. DME [Concomitant]
     Indication: Product used for unknown indication
  9. FLUCONAZOLE [Concomitant]
     Active Substance: FLUCONAZOLE
     Indication: Product used for unknown indication
  10. FORMOTEROL FUMARATE [Concomitant]
     Active Substance: FORMOTEROL FUMARATE
     Indication: Product used for unknown indication
  11. Hyper- sal [Concomitant]
     Indication: Product used for unknown indication
  12. ipratropium-Albutcrol [Concomitant]
     Indication: Product used for unknown indication
  13. KETOCONAZOLE [Concomitant]
     Active Substance: KETOCONAZOLE
     Indication: Product used for unknown indication
  14. LANSOPRAZOLE [Concomitant]
     Active Substance: LANSOPRAZOLE
     Indication: Product used for unknown indication
  15. Levothyroxine Sodium, [Concomitant]
     Indication: Product used for unknown indication
  16. LOPERAMIDE HYDROCHLORIDE [Concomitant]
     Active Substance: LOPERAMIDE HYDROCHLORIDE
     Indication: Product used for unknown indication
  17. LORAZEPAM [Concomitant]
     Active Substance: LORAZEPAM
  18. LOSARTAN POTASSIUM [Concomitant]
     Active Substance: LOSARTAN POTASSIUM
     Indication: Product used for unknown indication
  19. METRONIDAZOLE [Concomitant]
     Active Substance: METRONIDAZOLE
  20. MIRTAZAPINE [Concomitant]
     Active Substance: MIRTAZAPINE
  21. MUPIROCIN [Concomitant]
     Active Substance: MUPIROCIN
     Indication: Product used for unknown indication
  22. Nystatin T [Concomitant]
     Indication: Product used for unknown indication
  23. ONDANSETRON [Concomitant]
     Active Substance: ONDANSETRON
     Indication: Product used for unknown indication
  24. PREDNISONE [Concomitant]
     Active Substance: PREDNISONE
     Indication: Product used for unknown indication
  25. QC Fiber Laxative [Concomitant]
     Indication: Product used for unknown indication
  26. SODIUM CHLORIDE [Concomitant]
     Active Substance: SODIUM CHLORIDE
     Indication: Product used for unknown indication
  27. SULFAMETHOXAZOLE\TRIMETHOPRIM [Concomitant]
     Active Substance: SULFAMETHOXAZOLE\TRIMETHOPRIM
     Indication: Product used for unknown indication
  28. TADALAFIL [Concomitant]
     Active Substance: TADALAFIL
     Indication: Product used for unknown indication
  29. Triamcinolone Acetonide, [Concomitant]
     Indication: Product used for unknown indication
  30. TYVASO [Concomitant]
     Active Substance: TREPROSTINIL
     Indication: Product used for unknown indication
  31. ERGOCALCIFEROL [Concomitant]
     Active Substance: ERGOCALCIFEROL
     Indication: Product used for unknown indication

REACTIONS (1)
  - Rash [Unknown]
